FAERS Safety Report 9354866 (Version 73)
Quarter: 2020Q1

REPORT INFORMATION
  Report Type: Report from Study
  Country: CA (occurrence: CA)
  Receive Date: 20130619
  Receipt Date: 20200203
  Transmission Date: 20200409
  Serious: Yes (Hospitalization, Other)
  Sender: FDA-Public Use
  Company Number: CA-ROCHE-1211332

PATIENT
  Age: 18 Year
  Sex: Male
  Weight: 72 kg

DRUGS (22)
  1. ACTEMRA [Suspect]
     Active Substance: TOCILIZUMAB
     Route: 042
     Dates: start: 20130417, end: 20141223
  2. PREDNISONE. [Suspect]
     Active Substance: PREDNISONE
     Indication: PRODUCT USED FOR UNKNOWN INDICATION
     Route: 065
  3. AMLODIPINE [Concomitant]
     Active Substance: AMLODIPINE BESYLATE
  4. ACTEMRA [Suspect]
     Active Substance: TOCILIZUMAB
     Route: 042
     Dates: start: 20140307, end: 20150508
  5. ACTEMRA [Suspect]
     Active Substance: TOCILIZUMAB
     Route: 042
     Dates: start: 20150712
  6. ACTEMRA [Suspect]
     Active Substance: TOCILIZUMAB
     Route: 042
     Dates: start: 201910
  7. ACTEMRA [Suspect]
     Active Substance: TOCILIZUMAB
     Route: 042
     Dates: start: 20150612, end: 20160225
  8. ACTEMRA [Suspect]
     Active Substance: TOCILIZUMAB
     Indication: STILL^S DISEASE
     Route: 042
     Dates: start: 20130204, end: 20130403
  9. ACTEMRA [Suspect]
     Active Substance: TOCILIZUMAB
     Route: 042
     Dates: start: 20140220, end: 20150324
  10. ACTEMRA [Suspect]
     Active Substance: TOCILIZUMAB
     Route: 042
     Dates: start: 20150407
  11. ACTEMRA [Suspect]
     Active Substance: TOCILIZUMAB
     Route: 042
     Dates: start: 20170912
  12. BISOPROLOL [Concomitant]
     Active Substance: BISOPROLOL
  13. ACTEMRA [Suspect]
     Active Substance: TOCILIZUMAB
     Route: 042
     Dates: start: 20150324
  14. METHOTREXATE. [Concomitant]
     Active Substance: METHOTREXATE
  15. CORTISONE [Concomitant]
     Active Substance: CORTISONE
  16. ACTEMRA [Suspect]
     Active Substance: TOCILIZUMAB
     Route: 042
     Dates: start: 20140123, end: 20140123
  17. ACTEMRA [Suspect]
     Active Substance: TOCILIZUMAB
     Route: 042
     Dates: start: 20181113, end: 20191025
  18. ACTEMRA [Suspect]
     Active Substance: TOCILIZUMAB
     Route: 042
     Dates: start: 20191118
  19. ACTEMRA [Suspect]
     Active Substance: TOCILIZUMAB
     Route: 042
     Dates: start: 20151203
  20. ACTEMRA [Suspect]
     Active Substance: TOCILIZUMAB
     Route: 042
     Dates: start: 20161031, end: 20181016
  21. ACTEMRA [Suspect]
     Active Substance: TOCILIZUMAB
     Route: 042
     Dates: start: 20161031
  22. LEUCOVORIN [FOLINIC ACID] [Concomitant]
     Active Substance: LEUCOVORIN

REACTIONS (32)
  - Heart rate increased [Unknown]
  - Neoplasm of appendix [Unknown]
  - Oxygen saturation decreased [Not Recovered/Not Resolved]
  - Pericarditis [Unknown]
  - Biopsy oesophagus [Unknown]
  - Headache [Unknown]
  - Pain in extremity [Unknown]
  - Infusion site extravasation [Unknown]
  - Weight decreased [Recovering/Resolving]
  - Appendicitis [Recovered/Resolved]
  - Back pain [Not Recovered/Not Resolved]
  - Blood pressure increased [Unknown]
  - Cough [Not Recovered/Not Resolved]
  - Blood pressure systolic increased [Unknown]
  - Chest pain [Unknown]
  - Chest pain [Unknown]
  - Weight increased [Not Recovered/Not Resolved]
  - Nasopharyngitis [Recovering/Resolving]
  - Arthralgia [Unknown]
  - Blood pressure diastolic increased [Not Recovered/Not Resolved]
  - Oropharyngeal pain [Unknown]
  - Blood pressure systolic abnormal [Unknown]
  - Intentional product misuse [Unknown]
  - Off label use [Unknown]
  - Arthritis [Unknown]
  - Blister [Unknown]
  - Blood pressure increased [Recovering/Resolving]
  - Heart rate increased [Unknown]
  - Cyst [Unknown]
  - Oesophageal ulcer [Unknown]
  - Infusion related reaction [Unknown]
  - Blood pressure diastolic increased [Unknown]

NARRATIVE: CASE EVENT DATE: 20130403
